FAERS Safety Report 14841602 (Version 1)
Quarter: 2018Q2

REPORT INFORMATION
  Report Type: Spontaneous
  Country: US (occurrence: US)
  Receive Date: 20180503
  Receipt Date: 20180503
  Transmission Date: 20180711
  Serious: No
  Sender: FDA-Public Use
  Company Number: US-ASTRAZENECA-2018SE43361

PATIENT
  Age: 81 Year
  Sex: Female

DRUGS (11)
  1. ASPIRIN. [Concomitant]
     Active Substance: ASPIRIN
  2. ZOLPIDEM [Concomitant]
     Active Substance: ZOLPIDEM\ZOLPIDEM TARTRATE
  3. DIGITEK [Concomitant]
     Active Substance: DIGOXIN
  4. OMEPRAZOLE. [Concomitant]
     Active Substance: OMEPRAZOLE
  5. METOPROLOL TARTRATE. [Suspect]
     Active Substance: METOPROLOL TARTRATE
     Indication: CARDIAC DISORDER
     Route: 048
     Dates: start: 2014
  6. LEVOTHYROXINE. [Concomitant]
     Active Substance: LEVOTHYROXINE
  7. OMEPRAZOLE. [Suspect]
     Active Substance: OMEPRAZOLE
     Route: 048
  8. VITAMIN D [Concomitant]
     Active Substance: CHOLECALCIFEROL
  9. METOPROLOL TARTRATE. [Suspect]
     Active Substance: METOPROLOL TARTRATE
     Indication: BLOOD PRESSURE ABNORMAL
     Route: 048
     Dates: start: 2014
  10. SUTENT [Suspect]
     Active Substance: SUNITINIB MALATE
     Indication: GASTROINTESTINAL STROMAL TUMOUR
     Dosage: 25 MG CAPSULES BY MOUTH ONCE A DAY FOR 14 DAYS AND THEN 5 DAYS OFF, EVERY 28 DAYS
     Route: 048
     Dates: start: 20171221
  11. SUTENT [Suspect]
     Active Substance: SUNITINIB MALATE
     Indication: GASTROINTESTINAL DISORDER
     Dosage: 25 MG CAPSULES BY MOUTH ONCE A DAY FOR 14 DAYS AND THEN 5 DAYS OFF, EVERY 28 DAYS
     Route: 048
     Dates: start: 20171221

REACTIONS (13)
  - Cyst [Unknown]
  - Osteopenia [Unknown]
  - Gastrointestinal stromal tumour [Unknown]
  - Impaired healing [Unknown]
  - Atrial fibrillation [Unknown]
  - Vitamin D decreased [Unknown]
  - Sleep disorder [Unknown]
  - Gastric disorder [Unknown]
  - Blood calcium decreased [Unknown]
  - Diarrhoea [Not Recovered/Not Resolved]
  - Blood pressure abnormal [Unknown]
  - Cardiac disorder [Unknown]
  - Hypothyroidism [Unknown]

NARRATIVE: CASE EVENT DATE: 20180109
